FAERS Safety Report 6565936-4 (Version None)
Quarter: 2010Q1

REPORT INFORMATION
  Report Type: 
  Country: None (occurrence: None)
  Receive Date: 20100129
  Receipt Date: 20100129
  Transmission Date: 20100710
  Serious: No
  Sender: FDA-Public Use
  Company Number: None

PATIENT
  Sex: Female

DRUGS (1)
  1. TRUSOPT [Suspect]
     Indication: OPEN ANGLE GLAUCOMA
     Dosage: 1 DROP OU Q12HOURS
     Dates: start: 20090127, end: 20090330

REACTIONS (2)
  - PRODUCT SUBSTITUTION ISSUE [None]
  - TREATMENT FAILURE [None]
